FAERS Safety Report 17469832 (Version 1)
Quarter: 2020Q1

REPORT INFORMATION
  Report Type: Spontaneous
  Country: IN (occurrence: IN)
  Receive Date: 20200227
  Receipt Date: 20200227
  Transmission Date: 20200409
  Serious: Yes (Other)
  Sender: FDA-Public Use
  Company Number: IN-AKORN PHARMACEUTICALS-2020AKN00257

PATIENT
  Age: 45 Year
  Sex: Male

DRUGS (5)
  1. RIFAMPIN. [Suspect]
     Active Substance: RIFAMPIN
     Indication: PULMONARY TUBERCULOSIS
     Route: 065
  2. RIFAMPIN. [Suspect]
     Active Substance: RIFAMPIN
     Dosage: GRADUALLY INCREASED TO 600 MG
  3. ISONIAZID. [Concomitant]
     Active Substance: ISONIAZID
     Dosage: UNK
     Route: 065
  4. RIFAMPIN. [Suspect]
     Active Substance: RIFAMPIN
     Dosage: SEQUENTIALLY INCREASED THE DOSE UNTIL IT REACHED 450 MG
     Route: 065
  5. ISONIAZID. [Concomitant]
     Active Substance: ISONIAZID
     Indication: PULMONARY TUBERCULOSIS
     Route: 065

REACTIONS (1)
  - Lichenoid keratosis [Recovered/Resolved]
